FAERS Safety Report 18705549 (Version 3)
Quarter: 2021Q1

REPORT INFORMATION
  Report Type: Report from Study
  Country: MX (occurrence: MX)
  Receive Date: 20210106
  Receipt Date: 20210120
  Transmission Date: 20210419
  Serious: No
  Sender: FDA-Public Use
  Company Number: NVSC2020MX347222

PATIENT
  Sex: Female
  Weight: 47 kg

DRUGS (2)
  1. TEGRETOL [Suspect]
     Active Substance: CARBAMAZEPINE
     Indication: EPILEPSY
     Dosage: 3.5 DF (STARTED APPROX 40 YEARS AGO, 1 IN THE MORNING ANF AFTERNOON AND 1 AND HALF IN NIGHT))
     Route: 048
  2. SERC [Concomitant]
     Indication: OXYGEN SATURATION
     Dosage: 24 MG, QD
     Route: 065

REACTIONS (9)
  - Oral pain [Not Recovered/Not Resolved]
  - Visual impairment [Not Recovered/Not Resolved]
  - Wrong technique in product usage process [Unknown]
  - Salivary gland disorder [Not Recovered/Not Resolved]
  - Weight decreased [Unknown]
  - Body height decreased [Unknown]
  - Osteoarthritis [Not Recovered/Not Resolved]
  - Memory impairment [Not Recovered/Not Resolved]
  - Dry eye [Not Recovered/Not Resolved]
